FAERS Safety Report 18199013 (Version 1)
Quarter: 2020Q3

REPORT INFORMATION
  Report Type: Spontaneous
  Country: US (occurrence: US)
  Receive Date: 20200826
  Receipt Date: 20200826
  Transmission Date: 20201103
  Serious: Yes (Other)
  Sender: FDA-Public Use
  Company Number: US-PURDUE-USA-2020-0162783

PATIENT
  Sex: Male

DRUGS (17)
  1. OXYCONTIN [Suspect]
     Active Substance: OXYCODONE HYDROCHLORIDE
     Indication: NEPHROLITHIASIS
  2. CODEIN [Suspect]
     Active Substance: CODEINE
     Indication: BACK PAIN
  3. HYDROCODONE BITARTRATE AND ACETAMINOPHEN [Suspect]
     Active Substance: ACETAMINOPHEN\HYDROCODONE BITARTRATE
     Indication: BACK PAIN
  4. OXYCODONE/ ACETAMINOPHEN TABLETS [Suspect]
     Active Substance: ACETAMINOPHEN\OXYCODONE HYDROCHLORIDE
     Indication: NEPHROLITHIASIS
  5. TRAMADOL. [Suspect]
     Active Substance: TRAMADOL
     Indication: TOOTH FRACTURE
     Route: 065
  6. TRAMADOL. [Suspect]
     Active Substance: TRAMADOL
     Indication: BACK PAIN
  7. OXYCONTIN [Suspect]
     Active Substance: OXYCODONE HYDROCHLORIDE
     Indication: BACK PAIN
  8. HYDROCODONE BITARTRATE AND ACETAMINOPHEN [Suspect]
     Active Substance: ACETAMINOPHEN\HYDROCODONE BITARTRATE
     Indication: TOOTH FRACTURE
     Route: 048
  9. OXYCODONE/ ACETAMINOPHEN TABLETS [Suspect]
     Active Substance: ACETAMINOPHEN\OXYCODONE HYDROCHLORIDE
     Indication: BACK PAIN
  10. CODEIN [Suspect]
     Active Substance: CODEINE
     Indication: NEPHROLITHIASIS
  11. OXYCONTIN [Suspect]
     Active Substance: OXYCODONE HYDROCHLORIDE
     Indication: TOOTH FRACTURE
     Route: 048
  12. OXYCODONE/ ACETAMINOPHEN TABLETS [Suspect]
     Active Substance: ACETAMINOPHEN\OXYCODONE HYDROCHLORIDE
     Indication: TOOTH FRACTURE
     Route: 048
  13. CODEIN [Suspect]
     Active Substance: CODEINE
     Indication: TOOTH FRACTURE
     Route: 065
  14. TRAMADOL. [Suspect]
     Active Substance: TRAMADOL
     Indication: NEPHROLITHIASIS
  15. OXYCODONE HCL TABLETS (RHODES 91?490) [Suspect]
     Active Substance: OXYCODONE HYDROCHLORIDE
     Indication: TOOTH FRACTURE
     Route: 048
  16. OXYCODONE HCL TABLETS (RHODES 91?490) [Suspect]
     Active Substance: OXYCODONE HYDROCHLORIDE
     Indication: NEPHROLITHIASIS
  17. OXYCODONE HCL TABLETS (RHODES 91?490) [Suspect]
     Active Substance: OXYCODONE HYDROCHLORIDE
     Indication: BACK PAIN

REACTIONS (7)
  - Irritability [Unknown]
  - Disturbance in attention [Unknown]
  - Insomnia [Unknown]
  - Tremor [Unknown]
  - Palpitations [Unknown]
  - Agitation [Unknown]
  - Seizure [Unknown]
